FAERS Safety Report 8801676 (Version 1)
Quarter: 2012Q4

REPORT INFORMATION
  Report Type: 
  Country: US (occurrence: US)
  Receive Date: 20120921
  Receipt Date: 20120921
  Transmission Date: 20130627
  Serious: No
  Sender: FDA-Public Use
  Company Number: US-PFIZER INC-2012232962

PATIENT

DRUGS (2)
  1. CHANTIX [Suspect]
     Indication: SMOKING CESSATION THERAPY
     Dosage: UNK
  2. WELLBUTRIN [Suspect]
     Dosage: UNK

REACTIONS (2)
  - Feeling abnormal [Unknown]
  - Dysgeusia [Unknown]
